FAERS Safety Report 15855110 (Version 1)
Quarter: 2019Q1

REPORT INFORMATION
  Report Type: Spontaneous
  Country: DE (occurrence: DE)
  Receive Date: 20190122
  Receipt Date: 20190122
  Transmission Date: 20190417
  Serious: Yes (Death, Other)
  Sender: FDA-Public Use
  Company Number: DE-PFIZER INC-2019016369

PATIENT
  Age: 68 Year
  Sex: Female
  Weight: 43.3 kg

DRUGS (1)
  1. THROMBIN [Suspect]
     Active Substance: THROMBIN
     Dosage: UNK

REACTIONS (3)
  - Coagulation time prolonged [Unknown]
  - Haemorrhage [Unknown]
  - Acquired antithrombin III deficiency [Unknown]
